FAERS Safety Report 9716178 (Version 1)
Quarter: 2013Q4

REPORT INFORMATION
  Report Type: Spontaneous
  Country: US (occurrence: None)
  Receive Date: 20131126
  Receipt Date: 20131126
  Transmission Date: 20140711
  Serious: Yes (Death)
  Sender: FDA-Public Use
  Company Number: None

PATIENT
  Age: 74 Year
  Sex: Female

DRUGS (2)
  1. POMALYST [Suspect]
     Indication: PLASMA CELL MYELOMA
     Dosage: 1 CAPSULE
     Route: 048
     Dates: start: 20130425, end: 20131121
  2. POMALYST [Suspect]
     Indication: IMMUNE SYSTEM DISORDER
     Dosage: 1 CAPSULE
     Route: 048
     Dates: start: 20130425, end: 20131121

REACTIONS (1)
  - Death [None]
